FAERS Safety Report 12669848 (Version 3)
Quarter: 2016Q3

REPORT INFORMATION
  Report Type: Report from Study
  Country: BR (occurrence: BR)
  Receive Date: 20160819
  Receipt Date: 20160928
  Transmission Date: 20161109
  Serious: Yes (Hospitalization, Other)
  Sender: FDA-Public Use
  Company Number: PHHY2016BR111498

PATIENT
  Age: 21 Year
  Sex: Female
  Weight: 38 kg

DRUGS (6)
  1. EXJADE [Suspect]
     Active Substance: DEFERASIROX
     Indication: LEUKAEMIA
     Dosage: 20 MG/KG, QD (1000 MG)
     Route: 048
     Dates: start: 201510
  2. OMEPRAZOLE. [Concomitant]
     Active Substance: OMEPRAZOLE
     Indication: GASTRITIS
     Dosage: 1 DF, QD
     Route: 048
  3. FOLIC ACID. [Concomitant]
     Active Substance: FOLIC ACID
     Indication: ANAEMIA
     Dosage: 1 DF, QD
     Route: 048
  4. CEBRALAT [Concomitant]
     Active Substance: CILOSTAZOL
     Indication: CARDIOVASCULAR DISORDER
     Dosage: 1 DF, QD
     Route: 048
  5. EXJADE [Suspect]
     Active Substance: DEFERASIROX
     Dosage: 1 DF, QD
     Route: 048
     Dates: start: 20160526
  6. EXJADE [Suspect]
     Active Substance: DEFERASIROX
     Indication: SICKLE CELL ANAEMIA
     Dosage: 10 MG/KG, QD (500 MG)
     Route: 048
     Dates: start: 201605

REACTIONS (17)
  - Urine output decreased [Unknown]
  - Diarrhoea [Recovering/Resolving]
  - Delirium [Unknown]
  - Blood iron increased [Unknown]
  - Disorientation [Not Recovered/Not Resolved]
  - Weight decreased [Not Recovered/Not Resolved]
  - Hypophagia [Unknown]
  - Pyrexia [Unknown]
  - Vomiting [Not Recovered/Not Resolved]
  - Asthenia [Not Recovered/Not Resolved]
  - Abdominal pain [Unknown]
  - Nausea [Not Recovered/Not Resolved]
  - Pollakiuria [Unknown]
  - Abdominal pain upper [Unknown]
  - Urinary tract infection [Unknown]
  - Malaise [Not Recovered/Not Resolved]
  - Abdominal discomfort [Unknown]

NARRATIVE: CASE EVENT DATE: 201605
